FAERS Safety Report 16521348 (Version 1)
Quarter: 2019Q3

REPORT INFORMATION
  Report Type: Spontaneous
  Country: FR (occurrence: FR)
  Receive Date: 20190702
  Receipt Date: 20190702
  Transmission Date: 20191004
  Serious: Yes (Other)
  Sender: FDA-Public Use
  Company Number: PHHY2019FR145882

PATIENT
  Sex: Female

DRUGS (3)
  1. LEVETIRACETAM. [Suspect]
     Active Substance: LEVETIRACETAM
     Indication: FOETAL EXPOSURE DURING PREGNANCY
     Dosage: MATERNAL DOSE: 750 MG/DAY
     Route: 064
  2. LUTENYL [Suspect]
     Active Substance: NOMEGESTROL ACETATE
     Indication: FOETAL EXPOSURE DURING PREGNANCY
     Dosage: UNK
     Route: 064
  3. LEVETIRACETAM. [Suspect]
     Active Substance: LEVETIRACETAM
     Dosage: UNK
     Route: 063

REACTIONS (4)
  - Febrile convulsion [Unknown]
  - Growth retardation [Unknown]
  - Exposure via breast milk [Unknown]
  - Foetal exposure during pregnancy [Unknown]
